FAERS Safety Report 17575284 (Version 1)
Quarter: 2020Q1

REPORT INFORMATION
  Report Type: Spontaneous
  Country: US (occurrence: US)
  Receive Date: 20200317
  Receipt Date: 20200317
  Transmission Date: 20200409
  Serious: No
  Sender: FDA-Public Use
  Company Number: None

PATIENT
  Age: 77 Year
  Sex: Female
  Weight: 82.55 kg

DRUGS (11)
  1. VIT B [Concomitant]
     Active Substance: VITAMIN B
  2. VITAMIN D3 [Concomitant]
     Active Substance: CHOLECALCIFEROL
  3. COQ10 [Concomitant]
     Active Substance: UBIDECARENONE
  4. FLUTICASONE PROPIONATE 50MCG PER SPRAY [Suspect]
     Active Substance: FLUTICASONE PROPIONATE
     Indication: RHINITIS ALLERGIC
     Dosage: ?          QUANTITY:2 PUFFS;OTHER FREQUENCY:1 TO 2 TIMES A DAY;OTHER ROUTE:INHALED THROUGH NOSE?
     Dates: start: 20200205, end: 20200205
  5. SENIOR VITAMIN [Concomitant]
  6. CRESTOR [Concomitant]
     Active Substance: ROSUVASTATIN CALCIUM
  7. METMORPHIN [Concomitant]
  8. ZESTOR [Concomitant]
  9. METFORMIN [Concomitant]
     Active Substance: METFORMIN HYDROCHLORIDE
  10. LISINOPRIL. [Concomitant]
     Active Substance: LISINOPRIL
  11. BABY ASPIRIN [Concomitant]
     Active Substance: ASPIRIN

REACTIONS (7)
  - Vomiting [None]
  - Cough [None]
  - Deafness [None]
  - Epistaxis [None]
  - Tinnitus [None]
  - Abdominal discomfort [None]
  - Balance disorder [None]

NARRATIVE: CASE EVENT DATE: 20200205
